FAERS Safety Report 15601151 (Version 2)
Quarter: 2019Q1

REPORT INFORMATION
  Report Type: Report from Study
  Country: None (occurrence: US)
  Receive Date: 20181109
  Receipt Date: 20190205
  Transmission Date: 20190417
  Serious: Yes (Hospitalization)
  Sender: FDA-Public Use
  Company Number: US-ABBVIE-18K-163-2259812-00

PATIENT
  Age: 65 Year
  Sex: Female

DRUGS (2)
  1. HUMIRA [Suspect]
     Active Substance: ADALIMUMAB
     Route: 058
  2. HUMIRA [Suspect]
     Active Substance: ADALIMUMAB
     Indication: RHEUMATOID ARTHRITIS
     Route: 058
     Dates: start: 20180129, end: 201810

REACTIONS (24)
  - Peripheral swelling [Recovering/Resolving]
  - Sinusitis [Unknown]
  - Musculoskeletal pain [Recovered/Resolved]
  - Swelling [Recovered/Resolved]
  - Joint swelling [Unknown]
  - Injection site bruising [Recovered/Resolved]
  - Sensitivity to weather change [Not Recovered/Not Resolved]
  - Bone deformity [Not Recovered/Not Resolved]
  - Mobility decreased [Not Recovered/Not Resolved]
  - Musculoskeletal stiffness [Recovering/Resolving]
  - Loss of personal independence in daily activities [Recovering/Resolving]
  - Joint swelling [Recovering/Resolving]
  - Procedural pain [Unknown]
  - Pain [Recovered/Resolved]
  - Pain in extremity [Recovering/Resolving]
  - Joint stiffness [Recovering/Resolving]
  - Musculoskeletal stiffness [Recovered/Resolved]
  - Discomfort [Not Recovered/Not Resolved]
  - Arthralgia [Unknown]
  - Gait disturbance [Recovered/Resolved]
  - Impaired self-care [Recovering/Resolving]
  - Joint stiffness [Unknown]
  - Arthralgia [Recovering/Resolving]
  - Pain [Unknown]

NARRATIVE: CASE EVENT DATE: 2018
